FAERS Safety Report 19497780 (Version 1)
Quarter: 2021Q3

REPORT INFORMATION
  Report Type: Other
  Country: IT (occurrence: IT)
  Receive Date: 20210706
  Receipt Date: 20210706
  Transmission Date: 20211014
  Serious: Yes (Other)
  Sender: FDA-Public Use
  Company Number: IT-ROCHE-2862410

PATIENT

DRUGS (8)
  1. LEDIPASVIR [Suspect]
     Active Substance: LEDIPASVIR
     Indication: HEPATITIS C
  2. LEDIPASVIR [Suspect]
     Active Substance: LEDIPASVIR
     Indication: B-CELL LYMPHOMA
     Route: 065
  3. VELPATASVIR [Suspect]
     Active Substance: VELPATASVIR
     Indication: B-CELL LYMPHOMA
     Route: 065
  4. RIBAVIRIN. [Suspect]
     Active Substance: RIBAVIRIN
     Indication: HEPATITIS C
  5. SOFOSBUVIR [Suspect]
     Active Substance: SOFOSBUVIR
     Indication: HEPATITIS C
  6. RIBAVIRIN. [Suspect]
     Active Substance: RIBAVIRIN
     Indication: B-CELL LYMPHOMA
     Route: 065
  7. SOFOSBUVIR [Suspect]
     Active Substance: SOFOSBUVIR
     Indication: B-CELL LYMPHOMA
     Route: 065
  8. VELPATASVIR [Suspect]
     Active Substance: VELPATASVIR
     Indication: HEPATITIS C

REACTIONS (2)
  - Lipase increased [Unknown]
  - Breast cancer [Unknown]
